FAERS Safety Report 6764932-1 (Version None)
Quarter: 2010Q2

REPORT INFORMATION
  Report Type: 
  Country: None (occurrence: None)
  Receive Date: 20100610
  Receipt Date: 20100603
  Transmission Date: 20101027
  Serious: Yes (Other)
  Sender: FDA-Public Use
  Company Number: US-AMGEN-QUU413806

PATIENT
  Sex: Female
  Weight: 51.8 kg

DRUGS (6)
  1. NEULASTA [Suspect]
     Indication: CHEMOTHERAPY
     Route: 058
     Dates: start: 20100507
  2. UNSPECIFIED MEDICATION [Concomitant]
  3. PROMETHAZINE [Concomitant]
  4. EMEND [Concomitant]
  5. CYTOXAN [Concomitant]
     Dates: start: 20100421
  6. ADRIAMYCIN PFS [Concomitant]
     Dates: start: 20100421

REACTIONS (4)
  - BONE PAIN [None]
  - HYPERSOMNIA [None]
  - INCISION SITE COMPLICATION [None]
  - NEUTROPENIA [None]
